FAERS Safety Report 11405243 (Version 1)
Quarter: 2015Q3

REPORT INFORMATION
  Report Type: Other
  Country: US (occurrence: US)
  Receive Date: 20150821
  Receipt Date: 20150821
  Transmission Date: 20151125
  Serious: No
  Sender: FDA-Public Use
  Company Number: US-TAKEDA-2015TUS010895

PATIENT
  Age: 65 Year

DRUGS (3)
  1. JANUVIA [Concomitant]
     Active Substance: SITAGLIPTIN PHOSPHATE
  2. PREVACID [Suspect]
     Active Substance: LANSOPRAZOLE
     Indication: GASTRIC PH DECREASED
     Dosage: 30 MG, QD
     Route: 065
  3. METFORMIN [Concomitant]
     Active Substance: METFORMIN HYDROCHLORIDE

REACTIONS (1)
  - Cluster headache [Recovered/Resolved]
